FAERS Safety Report 7942838-X (Version None)
Quarter: 2011Q4

REPORT INFORMATION
  Report Type: 
  Country: None (occurrence: None)
  Receive Date: 20111128
  Receipt Date: 20111117
  Transmission Date: 20120403
  Serious: Yes (Hospitalization, Other)
  Sender: FDA-Public Use
  Company Number: ZA-B.I. PHARMACEUTICALS,INC./RIDGEFIELD-2011-AP-00629ZA

PATIENT
  Age: 69 Year
  Sex: Male

DRUGS (3)
  1. PEXOLA [Suspect]
     Dosage: 0.5MG AT 7 AM, 0.5MG AT 3PM, 1MG AT 8PM
  2. LOSARTAN POTASSIUM AND HYDROCHLOROTHIAZIDE [Concomitant]
     Indication: HYPERTENSION
  3. PEXOLA [Suspect]
     Indication: RESTLESS LEGS SYNDROME
     Dosage: 4-6 HALF PEXOLA DAILY, SOMETIMES 5 HALVES BUT NOT DAILY

REACTIONS (11)
  - MUSCLE SPASMS [None]
  - INSOMNIA [None]
  - CARDIAC FIBRILLATION [None]
  - FATIGUE [None]
  - PAIN [None]
  - GENERAL PHYSICAL HEALTH DETERIORATION [None]
  - CONSTIPATION [None]
  - IMPAIRED HEALING [None]
  - DISEASE PROGRESSION [None]
  - TOE AMPUTATION [None]
  - HYPOAESTHESIA [None]
